FAERS Safety Report 16372847 (Version 1)
Quarter: 2019Q2

REPORT INFORMATION
  Report Type: Spontaneous
  Country: US (occurrence: US)
  Receive Date: 20190530
  Receipt Date: 20190530
  Transmission Date: 20190711
  Serious: No
  Sender: FDA-Public Use
  Company Number: US-GLAXOSMITHKLINE-US2019094155

PATIENT
  Age: 77 Year
  Sex: Male

DRUGS (1)
  1. ABREVA [Suspect]
     Active Substance: DOCOSANOL
     Indication: ORAL HERPES
     Dosage: 5 TIMES A DAY
     Dates: start: 20190520, end: 20190524

REACTIONS (5)
  - Rash macular [Unknown]
  - Scab [Unknown]
  - Drug ineffective [Unknown]
  - Chemical burn [Unknown]
  - Oral discomfort [Unknown]

NARRATIVE: CASE EVENT DATE: 20190523
